FAERS Safety Report 18410298 (Version 3)
Quarter: 2020Q4

REPORT INFORMATION
  Report Type: Report from Study
  Country: DE (occurrence: DE)
  Receive Date: 20201021
  Receipt Date: 20201105
  Transmission Date: 20210114
  Serious: Yes (Death, Other)
  Sender: FDA-Public Use
  Company Number: NVSC2020DE281457

PATIENT
  Sex: Female
  Weight: 37 kg

DRUGS (2)
  1. LETROZOLE. [Suspect]
     Active Substance: LETROZOLE
     Indication: BREAST CANCER METASTATIC
     Dosage: 2.5 MG, QD
     Route: 048
     Dates: start: 20180928, end: 20201017
  2. KISQALI [Suspect]
     Active Substance: RIBOCICLIB
     Indication: BREAST CANCER METASTATIC
     Dosage: 600 MG, QD
     Route: 048
     Dates: start: 20180928, end: 20201011

REACTIONS (5)
  - Pneumonia [Fatal]
  - Respiratory failure [Fatal]
  - Dyspnoea [Fatal]
  - Chronic obstructive pulmonary disease [Fatal]
  - Pyrexia [Fatal]

NARRATIVE: CASE EVENT DATE: 20201012
